FAERS Safety Report 17890184 (Version 1)
Quarter: 2020Q2

REPORT INFORMATION
  Report Type: Spontaneous
  Country: TR (occurrence: TR)
  Receive Date: 20200612
  Receipt Date: 20200612
  Transmission Date: 20200714
  Serious: Yes (Death, Hospitalization)
  Sender: FDA-Public Use
  Company Number: TR-JUBILANT CADISTA PHARMACEUTICALS-2020JUB00205

PATIENT
  Age: 49 Year
  Sex: Female

DRUGS (9)
  1. CARBAMAZEPINE. [Suspect]
     Active Substance: CARBAMAZEPINE
     Dosage: UNKNOWN OVERDOSE AMOUNT
     Route: 065
  2. QUETIAPINE. [Concomitant]
     Active Substance: QUETIAPINE
     Dosage: 200 MG
     Route: 065
  3. MIDAZOLAM. [Concomitant]
     Active Substance: MIDAZOLAM
     Dosage: 1.5 MG, BOLUS INJECTIONS EVERY 30 MINUTES
     Route: 065
  4. DEXMEDETOMIDINE. [Concomitant]
     Active Substance: DEXMEDETOMIDINE
     Dosage: 1.5 ?G/KG, 1X/HOUR
     Route: 042
  5. MIDAZOLAM. [Concomitant]
     Active Substance: MIDAZOLAM
     Indication: SEDATION
     Dosage: 2 MG, BOLUS INJECTION
     Route: 065
  6. DEXMEDETOMIDINE. [Concomitant]
     Active Substance: DEXMEDETOMIDINE
     Indication: SEDATION
     Dosage: 0.2 ?G/KG/HR
     Route: 065
  7. VITAMIN D [Concomitant]
     Active Substance: VITAMIN D NOS
     Route: 065
  8. CARBAMAZEPINE. [Suspect]
     Active Substance: CARBAMAZEPINE
     Indication: EPILEPSY
     Dosage: 200 MG
     Route: 065
  9. CALCIUM [Concomitant]
     Active Substance: CALCIUM
     Route: 048

REACTIONS (5)
  - Seizure [Unknown]
  - Acute respiratory distress syndrome [Not Recovered/Not Resolved]
  - Suicidal ideation [Fatal]
  - Sedation complication [Not Recovered/Not Resolved]
  - Metabolic acidosis [Recovered/Resolved]
